FAERS Safety Report 7004163-3 (Version None)
Quarter: 2010Q3

REPORT INFORMATION
  Report Type: 
  Country: None (occurrence: None)
  Receive Date: 20100920
  Receipt Date: 20100224
  Transmission Date: 20110219
  Serious: No
  Sender: FDA-Public Use
  Company Number: US-WYE-H13809410

PATIENT
  Sex: Female
  Weight: 90.8 kg

DRUGS (13)
  1. PRISTIQ [Suspect]
     Indication: MAJOR DEPRESSION
     Dosage: 5 MG EVERY
     Route: 048
     Dates: start: 20100112
  2. AMLODIPINE BESILATE [Concomitant]
  3. CLONAZEPAM [Concomitant]
  4. LEVOTHYROXINE SODIUM [Concomitant]
  5. SPIRONOLACTONE [Concomitant]
  6. ASCORBIC ACID [Concomitant]
  7. SIMVASTATIN [Concomitant]
  8. ALBUTEROL [Concomitant]
  9. VITAMIN B-12 [Concomitant]
  10. VITAMIN E [Concomitant]
  11. VITAMIN D [Concomitant]
  12. CITALOPRAM HYDROBROMIDE [Concomitant]
  13. ESOMEPRAZOLE MAGNESIUM [Concomitant]

REACTIONS (5)
  - CONSTIPATION [None]
  - DRY MOUTH [None]
  - EXCESSIVE EYE BLINKING [None]
  - MYDRIASIS [None]
  - PRODUCTIVE COUGH [None]
